FAERS Safety Report 5505906-8 (Version None)
Quarter: 2007Q4

REPORT INFORMATION
  Report Type: 
  Country: None (occurrence: None)
  Receive Date: 20071102
  Receipt Date: 20071023
  Transmission Date: 20080405
  Serious: Yes (Disabling, Other)
  Sender: FDA-Public Use
  Company Number: GB-PFIZER INC-2007091219

PATIENT
  Age: 49 Year
  Sex: Male
  Weight: 120 kg

DRUGS (1)
  1. CHAMPIX [Suspect]
     Route: 048
     Dates: start: 20070622, end: 20070901

REACTIONS (3)
  - DRUG WITHDRAWAL SYNDROME [None]
  - HALLUCINATION, AUDITORY [None]
  - PARANOIA [None]
